FAERS Safety Report 7781990-6 (Version None)
Quarter: 2011Q3

REPORT INFORMATION
  Report Type: 
  Country: None (occurrence: None)
  Receive Date: 20110927
  Receipt Date: 20110922
  Transmission Date: 20111222
  Serious: Yes (Hospitalization, Other)
  Sender: FDA-Public Use
  Company Number: PHHY2010JP50217

PATIENT
  Age: 77 Year
  Sex: Female
  Weight: 36 kg

DRUGS (16)
  1. PREDNISOLONE [Suspect]
     Dosage: 7 MG, DAILY
     Route: 048
     Dates: start: 20090930, end: 20100202
  2. PREDNISOLONE [Suspect]
     Dosage: 6 MG, DAILY
     Route: 048
     Dates: start: 20100203, end: 20100421
  3. NOVOLIN R [Concomitant]
     Dosage: 10 DF, UNK
     Dates: start: 20090826
  4. DESFERAL [Concomitant]
     Indication: IRON OVERLOAD
     Dosage: 1000 MG, UNK
     Route: 030
     Dates: start: 20071227, end: 20090902
  5. ALENDRONATE SODIUM [Concomitant]
     Dosage: 5 MG, UNK
     Route: 048
     Dates: start: 20100412
  6. FAMOTIDINE [Concomitant]
     Indication: GASTRITIS PROPHYLAXIS
     Dosage: 40 MG, UNK
     Route: 048
  7. GLUFAST [Concomitant]
     Dosage: 40 MG, UNK
     Route: 048
     Dates: start: 20100826
  8. MUCODYNE [Concomitant]
     Indication: PROPHYLAXIS
     Dosage: 1500 MG, UNK
     Route: 048
     Dates: start: 20100819
  9. PREDNISOLONE [Suspect]
     Dosage: 5 MG DAILY
     Route: 048
     Dates: start: 20100422
  10. AMARYL [Concomitant]
     Dosage: 0.5 MG, UNK
     Route: 048
     Dates: start: 20100604, end: 20100820
  11. NOVOLIN R [Concomitant]
     Dosage: 12 DF, UNK
     Dates: end: 20091124
  12. NOVOLIN R [Concomitant]
     Dosage: 14 DF, UNK
  13. EXJADE [Suspect]
     Indication: MYELODYSPLASTIC SYNDROME
     Dosage: 750 MG, QD
     Route: 048
     Dates: start: 20090916
  14. PREDNISOLONE [Suspect]
     Dosage: 8 MG, DAILY
     Route: 048
     Dates: end: 20090929
  15. RED BLOOD CELLS, CONCENTRATED [Concomitant]
     Dosage: 4 U, EVERY THREE WEEKS
  16. CLARITHROMYCIN [Concomitant]
     Indication: PROPHYLAXIS
     Dosage: 200 MG, UNK
     Route: 048
     Dates: start: 20100823

REACTIONS (9)
  - BLOOD ALKALINE PHOSPHATASE INCREASED [None]
  - PNEUMONIA [None]
  - HERPES ZOSTER [None]
  - DEHYDRATION [None]
  - GENERAL PHYSICAL HEALTH DETERIORATION [None]
  - RENAL IMPAIRMENT [None]
  - BACK PAIN [None]
  - BLOOD CREATININE INCREASED [None]
  - PUBIS FRACTURE [None]
